FAERS Safety Report 15260063 (Version 1)
Quarter: 2018Q3

REPORT INFORMATION
  Report Type: Spontaneous
  Country: AT (occurrence: AT)
  Receive Date: 20180809
  Receipt Date: 20180809
  Transmission Date: 20181010
  Serious: Yes (Death, Hospitalization, Other)
  Sender: FDA-Public Use
  Company Number: AT-ENDO PHARMACEUTICALS INC-2018-040449

PATIENT
  Age: 86 Year
  Sex: Female

DRUGS (1)
  1. RHEUMATREX [Suspect]
     Active Substance: METHOTREXATE SODIUM
     Indication: PRODUCT USED FOR UNKNOWN INDICATION
     Dosage: 10 MG, DAILY FOR 8 DAYS
     Route: 048

REACTIONS (5)
  - Hepatic enzyme increased [Unknown]
  - Incorrect dose administered [Unknown]
  - Renal failure [Unknown]
  - Bone marrow failure [Fatal]
  - Sepsis [Fatal]
